FAERS Safety Report 7825040-1 (Version None)
Quarter: 2011Q4

REPORT INFORMATION
  Report Type: 
  Country: None (occurrence: None)
  Receive Date: 20111019
  Receipt Date: 20110406
  Transmission Date: 20120403
  Serious: No
  Sender: FDA-Public Use
  Company Number: US-BRISTOL-MYERS SQUIBB COMPANY-15656721

PATIENT
  Age: 77 Year
  Sex: Female
  Weight: 54 kg

DRUGS (4)
  1. AVALIDE [Suspect]
  2. MULTI-VITAMINS [Concomitant]
  3. AVAPRO [Concomitant]
  4. SECTRAL [Concomitant]

REACTIONS (1)
  - ADVERSE EVENT [None]
